FAERS Safety Report 4483054-6 (Version None)
Quarter: 2004Q3

REPORT INFORMATION
  Report Type: 
  Country: None (occurrence: None)
  Receive Date: 20040921
  Receipt Date: 20040512
  Transmission Date: 20050211
  Serious: Yes (Hospitalization)
  Sender: FDA-Public Use
  Company Number: 163-20785-04050323

PATIENT
  Age: 50 Year
  Sex: Female

DRUGS (3)
  1. THALOMID [Suspect]
     Indication: MULTIPLE MYELOMA
     Dosage: 50 MG, QHS, ORAL
     Route: 048
     Dates: start: 20030401
  2. VELCADE [Suspect]
     Indication: MULTIPLE MYELOMA
     Dosage: 1.3 MG/M2, DAYS 1,4,8,11 Q 28 DAYS, INTRAVENOUS
     Route: 042
     Dates: start: 20030311
  3. DEXAMETHASONE [Suspect]
     Indication: MULTIPLE MYELOMA
     Dosage: 4 DAYS PER MONTH
     Dates: start: 20020222

REACTIONS (3)
  - DISEASE PROGRESSION [None]
  - PLASMACYTOMA [None]
  - PNEUMONIA [None]
